FAERS Safety Report 15473021 (Version 1)
Quarter: 2018Q4

REPORT INFORMATION
  Report Type: Spontaneous
  Country: US (occurrence: US)
  Receive Date: 20181008
  Receipt Date: 20181008
  Transmission Date: 20190205
  Serious: Yes (Other)
  Sender: FDA-Public Use
  Company Number: US-PURDUE PHARMA-GBR-2018-0059842

PATIENT
  Age: 33 Year
  Sex: Female

DRUGS (4)
  1. PITOCIN [Concomitant]
     Active Substance: OXYTOCIN
     Dosage: UNK
     Route: 042
  2. NON-PMN MORPHINE SULFATE [Suspect]
     Active Substance: MORPHINE SULFATE
     Indication: PRODUCT USED FOR UNKNOWN INDICATION
     Dosage: 150 MCG, UNK
     Route: 037
  3. ONDANSETRON [Concomitant]
     Active Substance: ONDANSETRON
     Dosage: UNK
     Route: 042
  4. BUPIVACAINE HYDROCHLORIDE. [Concomitant]
     Active Substance: BUPIVACAINE HYDROCHLORIDE
     Indication: SPINAL ANAESTHESIA
     Dosage: 1.5 ML, UNK
     Route: 037

REACTIONS (3)
  - Hypothermia [Recovered/Resolved]
  - Bradycardia [Recovered/Resolved]
  - Maternal exposure during pregnancy [Unknown]
